FAERS Safety Report 4855876-0 (Version None)
Quarter: 2005Q4

REPORT INFORMATION
  Report Type: 
  Country: None (occurrence: None)
  Receive Date: 20051216
  Receipt Date: 20051122
  Transmission Date: 20060501
  Serious: Yes (Hospitalization)
  Sender: FDA-Public Use
  Company Number: 2005AP06104

PATIENT
  Age: 25134 Day
  Sex: Female

DRUGS (5)
  1. IRESSA [Suspect]
     Indication: NON-SMALL CELL LUNG CANCER
     Route: 048
     Dates: start: 20050531, end: 20051117
  2. ARTIST [Concomitant]
     Indication: HYPERTENSION
     Route: 048
     Dates: start: 20040401
  3. MYSLEE [Concomitant]
     Indication: INSOMNIA
     Route: 048
     Dates: start: 20040401
  4. ALESION [Concomitant]
     Indication: ECZEMA
     Route: 048
     Dates: start: 20050922
  5. RADIOTHERAPY [Concomitant]
     Dosage: 50 GY TO WHOLE BRAIN
     Dates: start: 20050222, end: 20050330

REACTIONS (3)
  - ALANINE AMINOTRANSFERASE INCREASED [None]
  - ASPARTATE AMINOTRANSFERASE INCREASED [None]
  - HEPATIC FUNCTION ABNORMAL [None]
